FAERS Safety Report 8848906 (Version 1)
Quarter: 2012Q4

REPORT INFORMATION
  Report Type: Spontaneous
  Country: JP (occurrence: None)
  Receive Date: 20121016
  Receipt Date: 20121016
  Transmission Date: 20130627
  Serious: Yes (Other)
  Sender: FDA-Public Use
  Company Number: FK201203062

PATIENT
  Age: 19 Year
  Sex: Male

DRUGS (6)
  1. METHOTREXATE [Suspect]
     Indication: JUVENILE ARTHRITIS
  2. CISPLATIN (MANUFACTURER UNKNOWN){CISPLATIN)(CISPLATIN) [Suspect]
  3. BLEOMYCIN [Suspect]
  4. ETOPOSIDE [Suspect]
  5. INFLIXIMAB [Suspect]
  6. PREDNISOLONE (PREDNISOLONE) [Concomitant]

REACTIONS (3)
  - Germ cell cancer [None]
  - Stomatitis [None]
  - Bone marrow failure [None]
